FAERS Safety Report 23656907 (Version 1)
Quarter: 2024Q1

REPORT INFORMATION
  Report Type: Spontaneous
  Country: US (occurrence: US)
  Receive Date: 20240321
  Receipt Date: 20240321
  Transmission Date: 20240410
  Serious: Yes (Death, Other)
  Sender: FDA-Public Use
  Company Number: US-SANDOZ-SDZ2024US030097

PATIENT
  Age: 54 Year
  Sex: Male
  Weight: 153.77 kg

DRUGS (1)
  1. ENOXAPARIN SODIUM [Suspect]
     Active Substance: ENOXAPARIN SODIUM
     Indication: Anticoagulant therapy
     Dosage: 40 MG 2 DOSE EVERY DAY
     Route: 058
     Dates: start: 20210901, end: 20210913

REACTIONS (3)
  - Pulmonary embolism [Fatal]
  - Cardiac arrest [Fatal]
  - Right ventricular failure [Fatal]

NARRATIVE: CASE EVENT DATE: 20210924
